FAERS Safety Report 5253100-0 (Version None)
Quarter: 2007Q1

REPORT INFORMATION
  Report Type: 
  Country: None (occurrence: None)
  Receive Date: 20070301
  Receipt Date: 20070226
  Transmission Date: 20070707
  Serious: Yes (Other)
  Sender: FDA-Public Use
  Company Number: US-GLAXOSMITHKLINE-A0607585A

PATIENT
  Age: 49 Year
  Sex: Male

DRUGS (4)
  1. LAMICTAL [Suspect]
     Indication: BIPOLAR DISORDER
     Dosage: 150MG TWICE PER DAY
     Route: 048
     Dates: start: 20040301
  2. PAXIL [Concomitant]
  3. ATENOLOL [Concomitant]
  4. CLARITIN [Concomitant]

REACTIONS (7)
  - COORDINATION ABNORMAL [None]
  - GAIT DISTURBANCE [None]
  - LYMPHADENOPATHY [None]
  - MUSCULAR WEAKNESS [None]
  - PARKINSON'S DISEASE [None]
  - TONGUE BITING [None]
  - VISION BLURRED [None]
